FAERS Safety Report 5043169-0 (Version None)
Quarter: 2006Q2

REPORT INFORMATION
  Report Type: 
  Country: None (occurrence: None)
  Receive Date: 20060628
  Receipt Date: 20060612
  Transmission Date: 20061013
  Serious: Yes (Life-Threatening, Hospitalization)
  Sender: FDA-Public Use
  Company Number: WAES 0606USA04331

PATIENT
  Age: 65 Year
  Sex: Male
  Weight: 73.9363 kg

DRUGS (2)
  1. DECADRON [Suspect]
     Dosage: PO
     Route: 048
  2. CAP VORINOSTAT [Suspect]
     Indication: GLIOBLASTOMA MULTIFORME
     Dosage: 200 MG/BID/PO
     Route: 048
     Dates: start: 20060519, end: 20060531

REACTIONS (11)
  - ASTHENIA [None]
  - BLOOD SODIUM DECREASED [None]
  - DECREASED APPETITE [None]
  - FATIGUE [None]
  - HYPERGLYCAEMIA [None]
  - HYPOXIA [None]
  - NUCLEAR MAGNETIC RESONANCE IMAGING BRAIN ABNORMAL [None]
  - OEDEMA [None]
  - PNEUMONIA [None]
  - PNEUMONIA PRIMARY ATYPICAL [None]
  - PULMONARY OEDEMA [None]
